FAERS Safety Report 6990567-1 (Version None)
Quarter: 2010Q3

REPORT INFORMATION
  Report Type: 
  Country: None (occurrence: None)
  Receive Date: 20100916
  Receipt Date: 20100716
  Transmission Date: 20110219
  Serious: Yes (Other)
  Sender: FDA-Public Use
  Company Number: IS-PFIZER INC-2010062563

PATIENT
  Age: 33 Year
  Sex: Female

DRUGS (2)
  1. LYRICA [Suspect]
     Dosage: 300 MG, 1-2X/DAY
  2. LYRICA [Suspect]
     Dosage: 3000 MG, 1X/DAY

REACTIONS (1)
  - INTENTIONAL DRUG MISUSE [None]
